APPROVED DRUG PRODUCT: LORAZEPAM
Active Ingredient: LORAZEPAM
Strength: 2MG
Dosage Form/Route: TABLET;ORAL
Application: A072928 | Product #001 | TE Code: AB
Applicant: WATSON LABORATORIES INC
Approved: Oct 31, 1991 | RLD: No | RS: No | Type: RX